FAERS Safety Report 21141714 (Version 4)
Quarter: 2022Q3

REPORT INFORMATION
  Report Type: Spontaneous
  Country: US (occurrence: US)
  Receive Date: 20220728
  Receipt Date: 20220803
  Transmission Date: 20221026
  Serious: Yes (Other)
  Sender: FDA-Public Use
  Company Number: US-GLAXOSMITHKLINE-US2022109780

PATIENT

DRUGS (7)
  1. ADVAIR HFA [Suspect]
     Active Substance: FLUTICASONE PROPIONATE\SALMETEROL XINAFOATE
     Indication: Pain
     Dosage: 2 PUFF(S), BID HFA 115 MG/21MCG
     Route: 055
     Dates: start: 202001
  2. ADVAIR HFA [Suspect]
     Active Substance: FLUTICASONE PROPIONATE\SALMETEROL XINAFOATE
  3. ADVAIR DISKUS [Suspect]
     Active Substance: FLUTICASONE PROPIONATE\SALMETEROL XINAFOATE
     Indication: Pain
     Dosage: UNK PATIENT TAKES ALIEVE FOR PAIN WHEN NEEDED AND ASPIRIN FOR PAIN AS NEEDED
     Dates: start: 20220701
  4. NUCALA [Suspect]
     Active Substance: MEPOLIZUMAB
     Indication: Product used for unknown indication
     Dosage: UNK
     Dates: start: 20220101
  5. ATROVENT [Suspect]
     Active Substance: IPRATROPIUM BROMIDE
     Indication: Product used for unknown indication
     Dosage: UNK 2 VILES IN THE MACHINE FOR MANY YEARS
     Dates: start: 20160101, end: 20220401
  6. DULERA [Suspect]
     Active Substance: FORMOTEROL FUMARATE DIHYDRATE\MOMETASONE FUROATE
     Indication: Product used for unknown indication
     Dosage: UNK
     Dates: start: 2015, end: 2022
  7. FENSPIRIDE HYDROCHLORIDE [Suspect]
     Active Substance: FENSPIRIDE HYDROCHLORIDE
     Indication: Asthma
     Dosage: UNK EVERY 2 MONTHS
     Dates: start: 20220101

REACTIONS (6)
  - Pulmonary congestion [Not Recovered/Not Resolved]
  - Headache [Unknown]
  - Pain [Unknown]
  - Herpes zoster [Unknown]
  - Hypersensitivity [Unknown]
  - Sneezing [Not Recovered/Not Resolved]

NARRATIVE: CASE EVENT DATE: 20220101
